FAERS Safety Report 5049888-4 (Version None)
Quarter: 2006Q3

REPORT INFORMATION
  Report Type: 
  Country: None (occurrence: None)
  Receive Date: 20060706
  Receipt Date: 20060622
  Transmission Date: 20061208
  Serious: Yes (Hospitalization)
  Sender: FDA-Public Use
  Company Number: 226682

PATIENT

DRUGS (2)
  1. AVASTIN [Suspect]
     Indication: PANCREATIC CARCINOMA
  2. GEMCITABINE [Concomitant]

REACTIONS (2)
  - GASTRIC VARICES [None]
  - HAEMATEMESIS [None]
